FAERS Safety Report 6510187-2 (Version None)
Quarter: 2009Q4

REPORT INFORMATION
  Report Type: 
  Country: None (occurrence: None)
  Receive Date: 20091221
  Receipt Date: 20091221
  Transmission Date: 20100525
  Serious: Yes (Hospitalization)
  Sender: FDA-Public Use
  Company Number: None

PATIENT
  Sex: Male
  Weight: 58.0604 kg

DRUGS (2)
  1. POLYPHENON E -GREEN TEA- 200 MG EGCG POLYPHENON E, INTERNATIONAL, INC. [Suspect]
     Indication: NON-SMALL CELL LUNG CANCER
     Dosage: 200 MG QD PO
     Route: 048
     Dates: start: 20091211, end: 20091218
  2. TARCEVA [Suspect]
     Indication: NON-SMALL CELL LUNG CANCER
     Dosage: 150 MG QD PO
     Route: 048
     Dates: start: 20091211, end: 20091218

REACTIONS (4)
  - DYSPNOEA [None]
  - HAEMOPTYSIS [None]
  - HYPERCALCAEMIA [None]
  - PULMONARY EMBOLISM [None]
